FAERS Safety Report 10389344 (Version 4)
Quarter: 2014Q3

REPORT INFORMATION
  Report Type: Spontaneous
  Country: JP (occurrence: JP)
  Receive Date: 20140818
  Receipt Date: 20140930
  Transmission Date: 20150326
  Serious: Yes (Death, Hospitalization)
  Sender: FDA-Public Use
  Company Number: JP-UCBSA-2014008836

PATIENT
  Age: 85 Year
  Sex: Male

DRUGS (5)
  1. MIXED AMINO ACID,CARBOHYDRATE,ELECTROLYTE,VITAMIN COMBINE [Concomitant]
     Dosage: DAILY DOSE: 1000MG
  2. MIXED AMINO ACID,CARBOHYDRATE,ELECTROLYTE,VITAMIN COMBINE [Concomitant]
     Dosage: DAILY DOSE: 1000MG
  3. NEUPRO [Suspect]
     Active Substance: ROTIGOTINE
     Dosage: 4 MG, ONCE DAILY (QD)
     Route: 062
     Dates: start: 20140709, end: 20140728
  4. PIPERACILLIN AND TAZOBACTAM [Concomitant]
     Active Substance: PIPERACILLIN SODIUM\TAZOBACTAM SODIUM
     Indication: PNEUMONIA ASPIRATION
     Dosage: DAILY DOSE: 13.5 MG
     Dates: start: 20140703, end: 20140728
  5. NEUPRO [Suspect]
     Active Substance: ROTIGOTINE
     Indication: PARKINSON^S DISEASE
     Dosage: 2 MG, ONCE DAILY (QD)
     Route: 062
     Dates: end: 20140708

REACTIONS (2)
  - Drug-induced liver injury [Recovering/Resolving]
  - Pneumonia aspiration [Fatal]

NARRATIVE: CASE EVENT DATE: 2014
